FAERS Safety Report 25747462 (Version 1)
Quarter: 2025Q3

REPORT INFORMATION
  Report Type: Spontaneous
  Country: US (occurrence: US)
  Receive Date: 20250901
  Receipt Date: 20250901
  Transmission Date: 20251020
  Serious: No
  Sender: ABBVIE
  Company Number: US-ABBVIE-6432668

PATIENT
  Sex: Female

DRUGS (1)
  1. OMNICEF [Suspect]
     Active Substance: CEFDINIR
     Indication: Product used for unknown indication
     Route: 048

REACTIONS (1)
  - Drug hypersensitivity [Unknown]
